FAERS Safety Report 17973165 (Version 1)
Quarter: 2020Q3

REPORT INFORMATION
  Report Type: Spontaneous
  Country: US (occurrence: US)
  Receive Date: 20200701
  Receipt Date: 20200701
  Transmission Date: 20201103
  Serious: No
  Sender: FDA-Public Use
  Company Number: None

PATIENT
  Sex: Female

DRUGS (5)
  1. GABAPENTIN 600MG [Concomitant]
     Active Substance: GABAPENTIN
     Dosage: ?          OTHER FREQUENCY:1 IN AM +2 AT BEDT;?
  2. HYDROXYCHLOROQUINE 200MG PO BIC [Concomitant]
  3. ENBREL [Suspect]
     Active Substance: ETANERCEPT
     Indication: RHEUMATOID ARTHRITIS
     Route: 058
     Dates: start: 202006, end: 202006
  4. TRAMACOL 50MG PRN [Concomitant]
  5. ALENCRONATE 70MG [Concomitant]

REACTIONS (1)
  - Peripheral swelling [None]
